FAERS Safety Report 21786009 (Version 1)
Quarter: 2022Q4

REPORT INFORMATION
  Report Type: Spontaneous
  Country: ES (occurrence: ES)
  Receive Date: 20221228
  Receipt Date: 20221228
  Transmission Date: 20230112
  Serious: Yes (Hospitalization)
  Sender: FDA-Public Use
  Company Number: ES-ENDO PHARMACEUTICALS INC-2022-006694

PATIENT
  Age: 76 Year
  Sex: Male

DRUGS (6)
  1. VENLAFAXINE HYDROCHLORIDE [Suspect]
     Active Substance: VENLAFAXINE HYDROCHLORIDE
     Indication: Major depression
     Dosage: 300 MG, DAILY
     Route: 065
  2. VENLAFAXINE HYDROCHLORIDE [Suspect]
     Active Substance: VENLAFAXINE HYDROCHLORIDE
     Indication: Psychotic symptom
  3. HALOPERIDOL [Concomitant]
     Active Substance: HALOPERIDOL
     Indication: Major depression
     Dosage: 6 MG, DAILY
     Route: 065
  4. HALOPERIDOL [Concomitant]
     Active Substance: HALOPERIDOL
     Indication: Psychotic symptom
  5. VALPROIC ACID [Concomitant]
     Active Substance: VALPROIC ACID
     Indication: Major depression
     Dosage: 100 MG, DAILY
     Route: 065
  6. VALPROIC ACID [Concomitant]
     Active Substance: VALPROIC ACID
     Indication: Psychotic symptom

REACTIONS (1)
  - Atrial fibrillation [Unknown]
